FAERS Safety Report 7897104-8 (Version None)
Quarter: 2011Q4

REPORT INFORMATION
  Report Type: 
  Country: None (occurrence: None)
  Receive Date: 20111107
  Receipt Date: 20111027
  Transmission Date: 20120403
  Serious: Yes (Other)
  Sender: FDA-Public Use
  Company Number: SG-JNJFOC-20111012710

PATIENT
  Age: 18 Year
  Sex: Female

DRUGS (4)
  1. REMICADE [Suspect]
     Indication: CROHN'S DISEASE
     Route: 042
  2. HYDROCORTISONE [Concomitant]
     Route: 042
  3. REMICADE [Suspect]
     Dosage: 9TH INFUSION
     Route: 042
  4. DIPHENHYDRAMINE HCL [Concomitant]
     Route: 042

REACTIONS (3)
  - DEPRESSED LEVEL OF CONSCIOUSNESS [None]
  - ENCEPHALOPATHY [None]
  - INFUSION RELATED REACTION [None]
